FAERS Safety Report 23702026 (Version 1)
Quarter: 2024Q2

REPORT INFORMATION
  Report Type: Spontaneous
  Country: US (occurrence: US)
  Receive Date: 20240403
  Receipt Date: 20240403
  Transmission Date: 20240716
  Serious: No
  Sender: FDA-Public Use
  Company Number: US-APOTEX-2024AP003696

PATIENT
  Age: 23 Year
  Sex: Female
  Weight: 88.435 kg

DRUGS (13)
  1. METFORMIN [Suspect]
     Active Substance: METFORMIN HYDROCHLORIDE
     Indication: Type 1 diabetes mellitus
     Dosage: 1000 MILLIGRAM, QD
     Route: 065
  2. METFORMIN [Suspect]
     Active Substance: METFORMIN HYDROCHLORIDE
     Dosage: 1500 MILLIGRAM, QD
     Route: 065
  3. METFORMIN [Suspect]
     Active Substance: METFORMIN HYDROCHLORIDE
     Dosage: 2000 MILLIGRAM, QD
     Route: 065
  4. TIRZEPATIDE [Suspect]
     Active Substance: TIRZEPATIDE
     Indication: Type 1 diabetes mellitus
     Dosage: 2.5 MILLIGRAM, Q.WK.
     Route: 058
  5. TIRZEPATIDE [Suspect]
     Active Substance: TIRZEPATIDE
     Dosage: 5 MILLIGRAM, Q.WK.
     Route: 058
  6. TIRZEPATIDE [Suspect]
     Active Substance: TIRZEPATIDE
     Dosage: 7.5 MILLIGRAM, Q.WK.
     Route: 058
  7. INSULIN NOS [Concomitant]
     Active Substance: INSULIN NOS
     Indication: Type 1 diabetes mellitus
     Dosage: 55.4 UNITS BASAL, 26.5 UNITS BOLUS (TDD): 81.9 UNITS)
     Route: 065
  8. INSULIN NOS [Concomitant]
     Active Substance: INSULIN NOS
     Dosage: 51.7 UNITS BASAL, 29.4 UNITS BOLUS (TDD: 81.1 UNITS)
     Route: 065
  9. INSULIN NOS [Concomitant]
     Active Substance: INSULIN NOS
     Dosage: 51.5 UNITS BASAL, 21 UNITS BOLUS (TDD: 72.5 UNITS)
     Route: 065
  10. INSULIN NOS [Concomitant]
     Active Substance: INSULIN NOS
     Dosage: 41.1 UNITS BASAL, 14.5 UNITS BOLUS (TDD: 55.3 UNITS)
     Route: 065
  11. INSULIN NOS [Concomitant]
     Active Substance: INSULIN NOS
     Dosage: 36.5 UNITS BASAL, 17.1 UNITS BOLUS (TDD: 53.6 UNITS)
     Route: 065
  12. INSULIN NOS [Concomitant]
     Active Substance: INSULIN NOS
     Dosage: 38.6 UNITS BASAL, 19.7 UNITS BOLUS (TDD: 58.3 UNITS)
     Route: 065
  13. INSULIN NOS [Concomitant]
     Active Substance: INSULIN NOS
     Dosage: 39.8 UNITS BASAL, 17.8 UNITS BOLUS (TDD: 57.6 UNITS)
     Route: 065

REACTIONS (2)
  - Off label use [Unknown]
  - Nausea [Unknown]
